FAERS Safety Report 4314816-3 (Version None)
Quarter: 2004Q1

REPORT INFORMATION
  Report Type: 
  Country: None (occurrence: None)
  Receive Date: 20040308
  Receipt Date: 20040226
  Transmission Date: 20041129
  Serious: Yes (Life-Threatening, Hospitalization)
  Sender: FDA-Public Use
  Company Number: 2004EU000420

PATIENT
  Age: 58 Year
  Sex: Male

DRUGS (5)
  1. PROGRAF [Suspect]
     Indication: LIVER TRANSPLANT
  2. PROGRAF [Suspect]
     Indication: RENAL TRANSPLANT
  3. ATG(ANTILYMPHOCYTE IMMUINOGLOBULIN (HORSE)) [Suspect]
     Dosage: UNKNOWN/D
  4. AZATHIOPRINE [Suspect]
     Dosage: 50.00 MG, UID/QD
  5. PREDNISONE [Suspect]
     Dosage: 15.00 MG, UID/QD, UNK

REACTIONS (10)
  - CYTOLOGY ABNORMAL [None]
  - DYSPHAGIA [None]
  - LOCAL SWELLING [None]
  - LYMPHADENOPATHY [None]
  - MALNUTRITION [None]
  - NECK PAIN [None]
  - NOCARDIOSIS [None]
  - PERICARDIAL EFFUSION [None]
  - PLEURAL EFFUSION [None]
  - THYROIDITIS [None]
